FAERS Safety Report 7884222-3 (Version None)
Quarter: 2011Q4

REPORT INFORMATION
  Report Type: 
  Country: None (occurrence: None)
  Receive Date: 20111102
  Receipt Date: 20111027
  Transmission Date: 20120403
  Serious: No
  Sender: FDA-Public Use
  Company Number: US-PFIZER INC-2011264586

PATIENT
  Sex: Male
  Weight: 86.168 kg

DRUGS (3)
  1. VIAGRA [Suspect]
     Indication: ERECTILE DYSFUNCTION
     Dosage: 50 MG, AS NEEDED
     Route: 048
     Dates: start: 20111001
  2. INSULIN [Concomitant]
     Indication: TYPE 2 DIABETES MELLITUS
     Dosage: 6 UNITS A DAY
  3. VIAGRA [Suspect]
     Dosage: 100 MG, UNK
     Dates: start: 20111024

REACTIONS (2)
  - ASTHENIA [None]
  - DIZZINESS [None]
